FAERS Safety Report 20152783 (Version 1)
Quarter: 2021Q4

REPORT INFORMATION
  Report Type: Spontaneous
  Country: US (occurrence: None)
  Receive Date: 20211206
  Receipt Date: 20211206
  Transmission Date: 20220303
  Serious: Yes (Hospitalization)
  Sender: FDA-Public Use
  Company Number: None

PATIENT
  Age: 51 Year
  Sex: Female

DRUGS (1)
  1. HUMIRA [Suspect]
     Active Substance: ADALIMUMAB
     Indication: Crohn^s disease
     Dosage: OTHER FREQUENCY : WEEKLY;?
     Route: 058
     Dates: start: 20200917

REACTIONS (5)
  - Weight fluctuation [None]
  - Diarrhoea [None]
  - Abdominal pain [None]
  - Crohn^s disease [None]
  - Quality of life decreased [None]

NARRATIVE: CASE EVENT DATE: 20211109
